FAERS Safety Report 18300228 (Version 1)
Quarter: 2020Q3

REPORT INFORMATION
  Report Type: Spontaneous
  Country: JP (occurrence: JP)
  Receive Date: 20200923
  Receipt Date: 20200923
  Transmission Date: 20201103
  Serious: Yes (Death)
  Sender: FDA-Public Use
  Company Number: PHJP2019JP009222

PATIENT
  Age: 34 Year
  Sex: Male

DRUGS (2)
  1. VOTRIENT [Suspect]
     Active Substance: PAZOPANIB HYDROCHLORIDE
     Indication: EWING^S SARCOMA
     Dosage: 600 MG, UNK
     Route: 048
  2. VOTRIENT [Suspect]
     Active Substance: PAZOPANIB HYDROCHLORIDE
     Dosage: 400 MG
     Route: 048

REACTIONS (5)
  - Malignant neoplasm progression [Fatal]
  - Monoparesis [Recovering/Resolving]
  - Malaise [Unknown]
  - Product use in unapproved indication [Unknown]
  - Ewing^s sarcoma [Fatal]
